FAERS Safety Report 8678034 (Version 2)
Quarter: 2012Q4

REPORT INFORMATION
  Report Type: Report from Study
  Country: DE (occurrence: DE)
  Receive Date: 20120723
  Receipt Date: 20121001
  Transmission Date: 20130627
  Serious: Yes (Hospitalization)
  Sender: FDA-Public Use
  Company Number: DE-ROCHE-1090464

PATIENT
  Age: 62 Year
  Sex: Female

DRUGS (9)
  1. AVASTIN [Suspect]
     Indication: NON-SMALL CELL LUNG CANCER
     Route: 042
     Dates: start: 20120430, end: 20120521
  2. CISPLATIN [Suspect]
     Indication: NON-SMALL CELL LUNG CANCER
     Route: 042
     Dates: start: 20120430, end: 20120508
  3. ALIMTA [Concomitant]
     Indication: NON-SMALL CELL LUNG CANCER
     Route: 042
     Dates: start: 20120430, end: 20120521
  4. BONDRONAT [Concomitant]
     Indication: METASTASES TO BONE
     Route: 042
     Dates: start: 20120430, end: 20120611
  5. NAVOBAN [Concomitant]
     Route: 042
     Dates: start: 20120430, end: 20120521
  6. DEXAMETHASONE [Concomitant]
     Route: 042
     Dates: start: 20120430, end: 20120521
  7. VERGENTAN [Concomitant]
     Route: 042
     Dates: start: 20120430, end: 20120521
  8. TAVEGIL [Concomitant]
     Route: 042
     Dates: start: 20120430, end: 20120521
  9. CARBOPLATIN [Concomitant]
     Indication: LUNG NEOPLASM MALIGNANT
     Route: 065
     Dates: start: 20120521, end: 20120521

REACTIONS (4)
  - Renal failure acute [Recovered/Resolved]
  - Vomiting [Recovered/Resolved]
  - Vomiting [Recovered/Resolved]
  - Dehydration [Recovered/Resolved]
